FAERS Safety Report 18996315 (Version 2)
Quarter: 2021Q1

REPORT INFORMATION
  Report Type: Report from Study
  Country: CA (occurrence: CA)
  Receive Date: 20210311
  Receipt Date: 20210316
  Transmission Date: 20210420
  Serious: Yes (Hospitalization, Other)
  Sender: FDA-Public Use
  Company Number: CA-SA-2021SA049537

PATIENT
  Age: 39 Year
  Sex: Female

DRUGS (6)
  1. VITAMIN B COMPLEX [Concomitant]
     Active Substance: CYANOCOBALAMIN\DEXPANTHENOL\NIACINAMIDE\PYRIDOXINE HYDROCHLORIDE\RIBOFLAVIN 5^-PHOSPHATE SODIUM\THIAMINE HYDROCHLORIDE\VITAMIN B COMPLEX
  2. JASMINE [AZELASTINE HYDROCHLORIDE] [Concomitant]
     Active Substance: AZELASTINE HYDROCHLORIDE
  3. ALEMTUZUMAB [Suspect]
     Active Substance: ALEMTUZUMAB
     Indication: RELAPSING-REMITTING MULTIPLE SCLEROSIS
     Dosage: 12 MG, QD
     Route: 041
     Dates: start: 20170425, end: 20170427
  4. VITAMIN D [VITAMIN D NOS] [Concomitant]
     Active Substance: VITAMIN D NOS
     Dosage: 100MILLIGRAM
  5. SPIRONOLACTONE. [Concomitant]
     Active Substance: SPIRONOLACTONE
     Dosage: 100 MG
  6. AMITRIPTYLINE [Concomitant]
     Active Substance: AMITRIPTYLINE

REACTIONS (30)
  - Thyrotoxic crisis [Recovering/Resolving]
  - Dyspnoea [Recovering/Resolving]
  - COVID-19 [Not Recovered/Not Resolved]
  - Heart rate irregular [Unknown]
  - Heart rate increased [Unknown]
  - Blood thyroid stimulating hormone abnormal [Recovering/Resolving]
  - Weight decreased [Recovering/Resolving]
  - Menorrhagia [Unknown]
  - Tri-iodothyronine abnormal [Recovering/Resolving]
  - Fatigue [Unknown]
  - Temperature intolerance [Unknown]
  - Infertility female [Unknown]
  - Diarrhoea [Recovering/Resolving]
  - Hyperhidrosis [Unknown]
  - Heart rate increased [Not Recovered/Not Resolved]
  - Headache [Recovering/Resolving]
  - Basedow^s disease [Unknown]
  - Fatigue [Recovering/Resolving]
  - Nausea [Recovering/Resolving]
  - Cardiac failure [Not Recovered/Not Resolved]
  - Frequent bowel movements [Unknown]
  - Increased appetite [Unknown]
  - Dry skin [Unknown]
  - Thyroxine abnormal [Recovering/Resolving]
  - Dysphonia [Unknown]
  - Alopecia [Unknown]
  - Menstruation irregular [Unknown]
  - Anxiety [Recovering/Resolving]
  - Increased upper airway secretion [Not Recovered/Not Resolved]
  - Blood pressure increased [Not Recovered/Not Resolved]

NARRATIVE: CASE EVENT DATE: 202102
